FAERS Safety Report 7937521-0 (Version None)
Quarter: 2011Q4

REPORT INFORMATION
  Report Type: 
  Country: None (occurrence: None)
  Receive Date: 20111123
  Receipt Date: 20111121
  Transmission Date: 20120403
  Serious: Yes (Other)
  Sender: FDA-Public Use
  Company Number: US-BAYER-2011-112473

PATIENT
  Age: 54 Year
  Sex: Female

DRUGS (1)
  1. BETASERON [Suspect]
     Indication: MULTIPLE SCLEROSIS
     Dosage: 2 MIU, QOD
     Route: 058
     Dates: start: 20111105, end: 20111113

REACTIONS (5)
  - DYSPNOEA [None]
  - RENAL PAIN [None]
  - CHEST PAIN [None]
  - CHEST DISCOMFORT [None]
  - PHARYNGEAL OEDEMA [None]
